FAERS Safety Report 10035173 (Version 1)
Quarter: 2014Q1

REPORT INFORMATION
  Report Type: Spontaneous
  Country: GB (occurrence: GB)
  Receive Date: 20140325
  Receipt Date: 20140325
  Transmission Date: 20141002
  Serious: Yes (Other)
  Sender: FDA-Public Use
  Company Number: GB-MERCK-1403GBR011329

PATIENT
  Sex: Female

DRUGS (3)
  1. JANUVIA [Suspect]
     Route: 048
  2. SULFONYLUREA [Concomitant]
     Route: 048
  3. GLIPIZIDE [Concomitant]
     Dosage: 160 MG, BID
     Route: 048

REACTIONS (2)
  - Hypoglycaemia [Recovered/Resolved]
  - Diabetes mellitus inadequate control [Recovered/Resolved]
